FAERS Safety Report 7774509-7 (Version None)
Quarter: 2011Q3

REPORT INFORMATION
  Report Type: 
  Country: None (occurrence: None)
  Receive Date: 20110923
  Receipt Date: 20110915
  Transmission Date: 20111222
  Serious: Yes (Hospitalization, Other)
  Sender: FDA-Public Use
  Company Number: US-ROCHE-786818

PATIENT
  Sex: Male
  Weight: 90.9 kg

DRUGS (2)
  1. CAPECITABINE [Suspect]
     Dosage: FREQUENCY : BID 14 D ON
     Route: 048
     Dates: start: 20110409, end: 20110605
  2. VITAMIN D [Concomitant]

REACTIONS (10)
  - RENAL FAILURE [None]
  - FEELING HOT [None]
  - ERYTHEMA [None]
  - DEHYDRATION [None]
  - HYPOTENSION [None]
  - PALMAR-PLANTAR ERYTHRODYSAESTHESIA SYNDROME [None]
  - DIARRHOEA [None]
  - DYSPHONIA [None]
  - WEIGHT DECREASED [None]
  - PALMAR ERYTHEMA [None]
